FAERS Safety Report 8242787-6 (Version None)
Quarter: 2012Q1

REPORT INFORMATION
  Report Type: 
  Country: None (occurrence: None)
  Receive Date: 20120329
  Receipt Date: 20120326
  Transmission Date: 20120608
  Serious: Yes (Hospitalization)
  Sender: FDA-Public Use
  Company Number: DE-BAYER-2012-013342

PATIENT
  Age: 61 Year
  Sex: Female

DRUGS (10)
  1. SORAFENIB (RAF KINASE INHIBITOR) [Suspect]
     Indication: BREAST CANCER METASTATIC
     Dosage: 800 MG, UNK
     Route: 048
     Dates: start: 20110609, end: 20120209
  2. MOXONIDIN [Concomitant]
     Dosage: 1 DF, QD
  3. PACLITAXEL [Suspect]
     Indication: BREAST CANCER METASTATIC
     Dosage: 80 MG/M2 GIVEN ON DAYS 1, 8 AND 15 EVERY 28 DAYS
     Route: 042
     Dates: start: 20110609, end: 20120202
  4. SPIROBETA [Concomitant]
     Dosage: 1 DF, OM
     Dates: start: 20110821
  5. DIOVAN HCT [Concomitant]
     Dosage: 1 DF, OM
  6. VALSARTAN [Concomitant]
     Dosage: 0.5 DF, BID
  7. MOBLOC [Concomitant]
     Dosage: 1 DF, OM
  8. ENOXAPARIN SODIUM [Concomitant]
     Dosage: 0.1 DF, BID
     Dates: start: 20111007
  9. ACTRAPHANE [Concomitant]
     Dosage: 32IU - 0 - 22IU
  10. HYDROCORTISONE [Concomitant]
     Dosage: UNK
     Dates: start: 20111229

REACTIONS (1)
  - GROIN ABSCESS [None]
